FAERS Safety Report 14204830 (Version 1)
Quarter: 2017Q4

REPORT INFORMATION
  Report Type: Spontaneous
  Country: US (occurrence: US)
  Receive Date: 20171120
  Receipt Date: 20171120
  Transmission Date: 20180321
  Serious: Yes (Other)
  Sender: FDA-Public Use
  Company Number: US-ALVOGEN-2017-ALVOGEN-092682

PATIENT
  Age: 79 Year
  Sex: Male
  Weight: 81.65 kg

DRUGS (10)
  1. DOXAZOSIN [Concomitant]
     Active Substance: DOXAZOSIN\DOXAZOSIN MESYLATE
     Indication: HYPERTENSION
  2. GLIMEPIRIDE. [Concomitant]
     Active Substance: GLIMEPIRIDE
     Indication: PRODUCT USED FOR UNKNOWN INDICATION
     Dates: start: 2007
  3. AMLODIPINE [Concomitant]
     Active Substance: AMLODIPINE BESYLATE
     Indication: BLOOD PRESSURE ABNORMAL
  4. FENOFIBRATE. [Concomitant]
     Active Substance: FENOFIBRATE
     Indication: BLOOD PRESSURE ABNORMAL
  5. OMEGA [Concomitant]
     Active Substance: CONVALLARIA MAJALIS\CRATAEGUS LAEVIGATA LEAF\PROXYPHYLLINE
     Indication: BLOOD CHOLESTEROL
     Dates: start: 1998
  6. LISINOPRIL. [Suspect]
     Active Substance: LISINOPRIL
     Indication: BLOOD PRESSURE ABNORMAL
  7. BYDUREON [Suspect]
     Active Substance: EXENATIDE
     Indication: TYPE 2 DIABETES MELLITUS
     Route: 058
     Dates: start: 2016
  8. EFFEXOR [Concomitant]
     Active Substance: VENLAFAXINE HYDROCHLORIDE
     Indication: DEPRESSION
     Dates: start: 1999
  9. ASPIRIN. [Concomitant]
     Active Substance: ASPIRIN
     Indication: THROMBOSIS PROPHYLAXIS
  10. OMEGA [Concomitant]
     Active Substance: CONVALLARIA MAJALIS\CRATAEGUS LAEVIGATA LEAF\PROXYPHYLLINE
     Indication: BLOOD TRIGLYCERIDES
     Dates: start: 1998

REACTIONS (7)
  - Medication error [Unknown]
  - Prophylaxis [Unknown]
  - Emotional disorder [Unknown]
  - Blood glucose increased [Unknown]
  - Blood glucose fluctuation [Unknown]
  - Weight increased [Unknown]
  - Hypertension [Unknown]

NARRATIVE: CASE EVENT DATE: 2010
